FAERS Safety Report 4386643-2 (Version None)
Quarter: 2004Q2

REPORT INFORMATION
  Report Type: 
  Country: None (occurrence: None)
  Receive Date: 20040623
  Receipt Date: 20040604
  Transmission Date: 20050107
  Serious: Yes (Death)
  Sender: FDA-Public Use
  Company Number: USA040669297

PATIENT
  Age: 50 Year
  Sex: Female

DRUGS (1)
  1. ZYPREXA [Suspect]
     Indication: NERVOUS SYSTEM DISORDER
     Dates: start: 20010101, end: 20040328

REACTIONS (2)
  - HERNIA [None]
  - REFUSAL OF TREATMENT BY PATIENT [None]
